FAERS Safety Report 7957949-2 (Version None)
Quarter: 2011Q4

REPORT INFORMATION
  Report Type: 
  Country: None (occurrence: None)
  Receive Date: 20111205
  Receipt Date: 20111125
  Transmission Date: 20120403
  Serious: Yes (Other)
  Sender: FDA-Public Use
  Company Number: CHPA2011US016814

PATIENT
  Age: 30 Year
  Sex: Male

DRUGS (1)
  1. THERAFLU MAX-D SEVERE COLD + FLU [Suspect]
     Indication: NASOPHARYNGITIS
     Dosage: 1 DF, ONCE/SINGLE
     Route: 048
     Dates: start: 20111123, end: 20111123

REACTIONS (4)
  - RASH [None]
  - THERMAL BURN [None]
  - BURNING SENSATION [None]
  - BLISTER [None]
